FAERS Safety Report 20706354 (Version 1)
Quarter: 2022Q2

REPORT INFORMATION
  Report Type: Spontaneous
  Country: US (occurrence: None)
  Receive Date: 20220413
  Receipt Date: 20220413
  Transmission Date: 20220721
  Serious: Yes (Other)
  Sender: FDA-Public Use
  Company Number: None

PATIENT
  Age: 69 Year
  Sex: Female
  Weight: 95.85 kg

DRUGS (13)
  1. SEMGLEE (INSULIN GLARGINE-YFGN) [Suspect]
     Active Substance: INSULIN GLARGINE-YFGN
     Indication: Type 2 diabetes mellitus
     Dosage: OTHER QUANTITY : 1 INJECT UNIT 40-45?FREQUENCY : AT BEDTIME?OTHER ROUTE : INJECTION?
     Route: 050
     Dates: start: 20220323, end: 20220412
  2. LANTUS PEN [Concomitant]
  3. METFORMIN [Concomitant]
     Active Substance: METFORMIN HYDROCHLORIDE
  4. METOPROLOL TARTRATE [Concomitant]
     Active Substance: METOPROLOL TARTRATE
  5. LOSAETAN POTASIUM [Concomitant]
  6. ASPIRIN [Concomitant]
  7. ATORVASTATIN [Concomitant]
     Active Substance: ATORVASTATIN
  8. LATANOPROST OPTHMAIC [Concomitant]
  9. CENTRUM WOMEN 50 [Concomitant]
  10. VITAMIN E [Concomitant]
     Active Substance: .ALPHA.-TOCOPHEROL
  11. CALCIUM CITRATE [Concomitant]
     Active Substance: CALCIUM CITRATE
  12. ALIGN [Concomitant]
     Active Substance: BIFIDOBACTERIUM LONGUM SUBSP. INFANTIS
  13. MEATA MUCI [Concomitant]

REACTIONS (2)
  - Diarrhoea [None]
  - Therapy non-responder [None]

NARRATIVE: CASE EVENT DATE: 20220411
